FAERS Safety Report 6603644-1 (Version None)
Quarter: 2010Q1

REPORT INFORMATION
  Report Type: 
  Country: None (occurrence: None)
  Receive Date: 20100226
  Receipt Date: 20091230
  Transmission Date: 20100710
  Serious: No
  Sender: FDA-Public Use
  Company Number: A0837274A

PATIENT
  Age: 33 Year
  Sex: Female

DRUGS (3)
  1. VALTREX [Suspect]
     Indication: GENITAL HERPES
     Dosage: 500MG PER DAY
     Route: 048
     Dates: start: 20070901
  2. NORVASC [Concomitant]
  3. ORTHO TRI-CYCLEN LO [Concomitant]

REACTIONS (2)
  - HEADACHE [None]
  - MIGRAINE [None]
